FAERS Safety Report 4399309-X (Version None)
Quarter: 2004Q3

REPORT INFORMATION
  Report Type: 
  Country: None (occurrence: None)
  Receive Date: 20040712
  Receipt Date: 20040607
  Transmission Date: 20050211
  Serious: No
  Sender: FDA-Public Use
  Company Number: A01200402262

PATIENT
  Age: 81 Year
  Sex: Female

DRUGS (5)
  1. CLOPIDOGREL BISULFATE [Suspect]
     Indication: ARTERIAL OCCLUSIVE DISEASE
     Dosage: 75 MG QD
     Route: 048
     Dates: start: 20000101
  2. DILTIAZEM [Concomitant]
  3. FUROSEMIDE [Concomitant]
  4. CHOLECALCIFEROL (COLECALCIFEROL) [Concomitant]
  5. HEPARIN [Concomitant]

REACTIONS (2)
  - BLOOD CREATINE PHOSPHOKINASE INCREASED [None]
  - BLOOD CREATINE PHOSPHOKINASE MB INCREASED [None]
